FAERS Safety Report 5814901-0 (Version None)
Quarter: 2008Q3

REPORT INFORMATION
  Report Type: 
  Country: None (occurrence: None)
  Receive Date: 20080718
  Receipt Date: 20080708
  Transmission Date: 20090109
  Serious: Yes (Life-Threatening, Hospitalization, Other)
  Sender: FDA-Public Use
  Company Number: US-JNJFOC-20080605852

PATIENT
  Age: 37 Year
  Sex: Female
  Weight: 42.18 kg

DRUGS (4)
  1. REMICADE [Suspect]
     Indication: CROHN'S DISEASE
     Route: 042
  2. BUDESONIDE [Concomitant]
  3. MIRTAZOPINE [Concomitant]
  4. MESOLOMINE [Concomitant]

REACTIONS (3)
  - INTESTINAL PERFORATION [None]
  - PERIRECTAL ABSCESS [None]
  - TUBERCULOSIS [None]
